FAERS Safety Report 13073658 (Version 8)
Quarter: 2018Q2

REPORT INFORMATION
  Report Type: Report from Study
  Country: None (occurrence: NL)
  Receive Date: 20161229
  Receipt Date: 20180629
  Transmission Date: 20180711
  Serious: Yes (Hospitalization)
  Sender: FDA-Public Use
  Company Number: NL-ABBVIE-16K-114-1679260-00

PATIENT
  Age: 72 Year
  Sex: Male
  Weight: 76 kg

DRUGS (5)
  1. METHOTREXATE. [Concomitant]
     Active Substance: METHOTREXATE
     Indication: PRODUCT USED FOR UNKNOWN INDICATION
  2. COMTAN [Concomitant]
     Active Substance: ENTACAPONE
     Indication: PRODUCT USED FOR UNKNOWN INDICATION
  3. VITAMIN B12 [Concomitant]
     Active Substance: CYANOCOBALAMIN
     Indication: PRODUCT USED FOR UNKNOWN INDICATION
     Dates: start: 201611
  4. SIFROL [Concomitant]
     Active Substance: PRAMIPEXOLE
     Indication: PRODUCT USED FOR UNKNOWN INDICATION
     Route: 065
     Dates: end: 201611
  5. DUODOPA [Suspect]
     Active Substance: CARBIDOPA\LEVODOPA
     Indication: PARKINSON^S DISEASE
     Dosage: MD: 12.0, CD: 3.4,ED: 4.0
     Route: 050
     Dates: start: 20160704

REACTIONS (19)
  - Hypoaesthesia [Not Recovered/Not Resolved]
  - Drug effect incomplete [Not Recovered/Not Resolved]
  - Stoma site erythema [Recovered/Resolved]
  - Fine motor skill dysfunction [Not Recovered/Not Resolved]
  - Discomfort [Not Recovered/Not Resolved]
  - Freezing phenomenon [Recovered/Resolved]
  - On and off phenomenon [Not Recovered/Not Resolved]
  - On and off phenomenon [Unknown]
  - Parkinsonian gait [Not Recovered/Not Resolved]
  - Fatigue [Recovered/Resolved]
  - Middle insomnia [Recovered/Resolved]
  - Stoma site discharge [Recovered/Resolved]
  - Muscle rigidity [Not Recovered/Not Resolved]
  - Hyperhidrosis [Not Recovered/Not Resolved]
  - Restlessness [Not Recovered/Not Resolved]
  - Parkinson^s disease [Not Recovered/Not Resolved]
  - Bradykinesia [Not Recovered/Not Resolved]
  - Dyskinesia [Not Recovered/Not Resolved]
  - Night sweats [Recovering/Resolving]

NARRATIVE: CASE EVENT DATE: 201607
